FAERS Safety Report 5531681-7 (Version None)
Quarter: 2007Q4

REPORT INFORMATION
  Report Type: 
  Country: None (occurrence: None)
  Receive Date: 20071128
  Receipt Date: 20071112
  Transmission Date: 20080405
  Serious: Yes (Hospitalization)
  Sender: FDA-Public Use
  Company Number: S07-GER-06055-01

PATIENT
  Age: 60 Year
  Sex: Female

DRUGS (12)
  1. ESCITALOPRAM [Suspect]
     Indication: BIPOLAR DISORDER
     Dosage: 10 MG QD PO
     Route: 048
     Dates: start: 20061006, end: 20061116
  2. ESCITALOPRAM [Suspect]
     Indication: HYPOMANIA
     Dosage: 10 MG QD PO
     Route: 048
     Dates: start: 20061006, end: 20061116
  3. ESCITALOPRAM [Suspect]
     Indication: BIPOLAR DISORDER
     Dosage: 5 MG QD PO
     Route: 048
     Dates: start: 20061117, end: 20061118
  4. ESCITALOPRAM [Suspect]
     Indication: HYPOMANIA
     Dosage: 5 MG QD PO
     Route: 048
     Dates: start: 20061117, end: 20061118
  5. TOREM (TORASEMIDE) [Suspect]
     Indication: CARDIAC DISORDER
     Dosage: 10 MG QD PO
     Route: 048
  6. SPIRONOLACTONE [Suspect]
     Indication: CARDIAC DISORDER
     Dosage: 50 MG QD PO
     Route: 048
  7. ZYPREXA [Concomitant]
  8. ASPIRIN [Concomitant]
  9. PANTOZOL (PANTOPRAZOLE SODIUM) [Concomitant]
  10. PREDNISOLONE [Concomitant]
  11. ALLOPURINOL [Concomitant]
  12. CIPRAMIL FILMTABLETTEN (CITALOPRAM) [Concomitant]

REACTIONS (6)
  - CONVULSION [None]
  - DISEASE RECURRENCE [None]
  - DISORIENTATION [None]
  - HYPONATRAEMIA [None]
  - PARTIAL SEIZURES [None]
  - SYNCOPE [None]
